FAERS Safety Report 4935220-0 (Version None)
Quarter: 2006Q1

REPORT INFORMATION
  Report Type: 
  Country: None (occurrence: None)
  Receive Date: 20060302
  Receipt Date: 20060215
  Transmission Date: 20060701
  Serious: Yes (Hospitalization)
  Sender: FDA-Public Use
  Company Number: 2006-DE-00882GD

PATIENT

DRUGS (3)
  1. TRAZODONE HCL [Suspect]
  2. LITHIUM CARBONATE [Suspect]
  3. DIPHENHYDRAMINE HCL [Suspect]

REACTIONS (2)
  - DRUG TOXICITY [None]
  - MULTIPLE DRUG OVERDOSE INTENTIONAL [None]
